FAERS Safety Report 23749718 (Version 1)
Quarter: 2024Q2

REPORT INFORMATION
  Report Type: Report from Study
  Country: US (occurrence: US)
  Receive Date: 20240416
  Receipt Date: 20240416
  Transmission Date: 20240716
  Serious: No
  Sender: FDA-Public Use
  Company Number: US-ALXN-A202305912

PATIENT
  Age: 43 Year
  Sex: Female

DRUGS (3)
  1. STRENSIQ [Suspect]
     Active Substance: ASFOTASE ALFA
     Indication: Hypophosphatasia
     Dosage: UNK
     Route: 065
  2. GABAPENTIN [Concomitant]
     Active Substance: GABAPENTIN
     Indication: Product used for unknown indication
     Dosage: UNK
     Route: 065
  3. ADALIMUMAB [Concomitant]
     Active Substance: ADALIMUMAB\ISOPROPYL ALCOHOL
     Indication: Product used for unknown indication
     Dosage: UNK
     Route: 065

REACTIONS (10)
  - Fatigue [Not Recovered/Not Resolved]
  - Poor quality sleep [Unknown]
  - Feeling abnormal [Unknown]
  - Injection site pain [Unknown]
  - Contusion [Unknown]
  - Injection site bruising [Unknown]
  - Injection site mass [Unknown]
  - Injection site discolouration [Unknown]
  - Injection site erythema [Unknown]
  - Injection site haemorrhage [Unknown]

NARRATIVE: CASE EVENT DATE: 20230501
